FAERS Safety Report 7961492-4 (Version None)
Quarter: 2011Q4

REPORT INFORMATION
  Report Type: 
  Country: None (occurrence: None)
  Receive Date: 20111207
  Receipt Date: 20111128
  Transmission Date: 20120403
  Serious: Yes (Other)
  Sender: FDA-Public Use
  Company Number: GB-AMGEN-GBRSP2011061567

PATIENT
  Age: 73 Year
  Sex: Female

DRUGS (4)
  1. CALCIUM [Concomitant]
     Dosage: UNK
  2. PREDNISOLONE [Concomitant]
     Dosage: UNK
  3. ENBREL [Suspect]
     Indication: RHEUMATOID ARTHRITIS
     Dosage: 50 MG, UNK
     Route: 058
     Dates: start: 20050517, end: 20111021
  4. SULFASALAZINE [Concomitant]
     Dosage: 1 G, 2X/DAY
     Route: 048

REACTIONS (1)
  - SCLERITIS [None]
